FAERS Safety Report 9145791 (Version 3)
Quarter: 2013Q4

REPORT INFORMATION
  Report Type: Report from Study
  Country: BR (occurrence: BR)
  Receive Date: 20130307
  Receipt Date: 20131101
  Transmission Date: 20140711
  Serious: Yes (Life-Threatening, Other)
  Sender: FDA-Public Use
  Company Number: PHHY2013BR021667

PATIENT
  Age: 51 Year
  Sex: Female

DRUGS (13)
  1. SANDOSTATIN LAR [Suspect]
     Indication: ACROMEGALY
     Dosage: 20 MG, EVERY 30 DAYS
  2. SANDOSTATIN LAR [Suspect]
     Dosage: 20 MG, EVERY 30 DAYS
  3. SANDOSTATIN LAR [Suspect]
     Dosage: 20 MG, EVERY 30 DAYS
  4. ULTRACET [Suspect]
     Indication: PAIN
     Dosage: UKN, EVERY 8 HOURS
     Dates: start: 20131014, end: 20131021
  5. PURAN T4 [Concomitant]
     Dosage: UNK UKN, UNK
     Dates: start: 2000
  6. PROPANOLOL [Concomitant]
     Dosage: UNK UKN, UNK
  7. LOSARTAN [Concomitant]
     Dosage: UNK UKN, UNK
  8. OMEPRAZOLE [Concomitant]
     Dosage: UNK UKN, UNK
  9. PREDNISONE [Concomitant]
     Dosage: 25 MG, UNK
  10. ACETYLSALICYLIC ACID [Concomitant]
     Dosage: UNK
  11. GLIFAGE [Concomitant]
     Dosage: UNK UKN, UNK
  12. SIMVASTATIN [Concomitant]
     Dosage: UNK UKN, UNK
  13. CORTISONE [Concomitant]
     Dosage: UNK UKN, UNK

REACTIONS (21)
  - Coma [Recovering/Resolving]
  - Blister [Unknown]
  - Weight increased [Not Recovered/Not Resolved]
  - Adrenal insufficiency [Unknown]
  - Stitch abscess [Unknown]
  - Thyroid neoplasm [Unknown]
  - Nephrolithiasis [Unknown]
  - Renal colic [Unknown]
  - Bone pain [Recovering/Resolving]
  - Gait disturbance [Recovering/Resolving]
  - Arthralgia [Recovering/Resolving]
  - Pain in extremity [Recovering/Resolving]
  - Local swelling [Unknown]
  - Back pain [Not Recovered/Not Resolved]
  - Dysstasia [Unknown]
  - Spinal pain [Recovering/Resolving]
  - Hyperhidrosis [Unknown]
  - Dry mouth [Not Recovered/Not Resolved]
  - Blood glucose fluctuation [Unknown]
  - Fatigue [Recovering/Resolving]
  - Abdominal distension [Recovering/Resolving]
